FAERS Safety Report 9615865 (Version 3)
Quarter: 2013Q4

REPORT INFORMATION
  Report Type: Report from Study
  Country: US (occurrence: US)
  Receive Date: 20131011
  Receipt Date: 20131220
  Transmission Date: 20140711
  Serious: Yes (Hospitalization, Other)
  Sender: FDA-Public Use
  Company Number: US-SANOFI-AVENTIS-2013SA006112

PATIENT
  Age: 55 Year
  Sex: Female

DRUGS (5)
  1. AUBAGIO [Suspect]
     Indication: MULTIPLE SCLEROSIS
     Route: 048
     Dates: start: 2012, end: 20130528
  2. NEURONTIN [Concomitant]
     Indication: MULTIPLE SCLEROSIS
     Dates: start: 2001
  3. TAMOXIFEN [Concomitant]
     Indication: BREAST CANCER
     Dates: start: 2009
  4. BACLOFEN [Concomitant]
     Dosage: 20, 3 X DAY
     Dates: start: 2001
  5. TYLENOL [Concomitant]
     Dosage: 1-2 X DAY

REACTIONS (14)
  - Fall [Unknown]
  - Asthenia [Unknown]
  - Multiple sclerosis relapse [Unknown]
  - Bone pain [Recovering/Resolving]
  - Headache [Unknown]
  - Diarrhoea [Recovering/Resolving]
  - Fatigue [Recovering/Resolving]
  - Blood pressure increased [Unknown]
  - Adverse event [Unknown]
  - Increased appetite [Unknown]
  - Ageusia [Unknown]
  - Alopecia [Recovering/Resolving]
  - Flatulence [Unknown]
  - Faecal incontinence [Unknown]
